APPROVED DRUG PRODUCT: ERYTHROMYCIN
Active Ingredient: ERYTHROMYCIN
Strength: 250MG
Dosage Form/Route: TABLET;ORAL
Application: A214549 | Product #001 | TE Code: AB
Applicant: TEVA PHARMACEUTICALS USA INC
Approved: Feb 11, 2021 | RLD: No | RS: No | Type: RX